FAERS Safety Report 22020365 (Version 1)
Quarter: 2023Q1

REPORT INFORMATION
  Report Type: Spontaneous
  Country: US (occurrence: US)
  Receive Date: 20230222
  Receipt Date: 20230222
  Transmission Date: 20230418
  Serious: No
  Sender: FDA-Public Use
  Company Number: US-SA-SAC20230220000318

PATIENT
  Sex: Female

DRUGS (17)
  1. DUPIXENT [Suspect]
     Active Substance: DUPILUMAB
     Indication: Dermatitis atopic
     Dosage: 300 MG, QOW
     Route: 058
  2. RINVOQ [Suspect]
     Active Substance: UPADACITINIB
     Dosage: UNK
     Dates: start: 202302
  3. DOXEPIN [Concomitant]
     Active Substance: DOXEPIN
  4. ONDANSETRON [Concomitant]
     Active Substance: ONDANSETRON
  5. LAGEVRIO [Concomitant]
     Active Substance: MOLNUPIRAVIR
  6. LISINOPRIL [Concomitant]
     Active Substance: LISINOPRIL
  7. PANTOPRAZOLE [Concomitant]
     Active Substance: PANTOPRAZOLE
  8. ALPRAZOLAM [Concomitant]
     Active Substance: ALPRAZOLAM
  9. OPZELURA [Concomitant]
     Active Substance: RUXOLITINIB PHOSPHATE
  10. NASCOBAL [Concomitant]
     Active Substance: CYANOCOBALAMIN
  11. DULOXETINE [Concomitant]
     Active Substance: DULOXETINE
  12. SKYRIZI [Concomitant]
     Active Substance: RISANKIZUMAB-RZAA
  13. SIMVASTATIN [Concomitant]
     Active Substance: SIMVASTATIN
  14. VITAMIN D2 [Concomitant]
     Active Substance: ERGOCALCIFEROL
  15. BUPROPION [Concomitant]
     Active Substance: BUPROPION
  16. PILOCARPINE [Concomitant]
     Active Substance: PILOCARPINE
  17. HYDROXYZINE [Concomitant]
     Active Substance: HYDROXYZINE HYDROCHLORIDE

REACTIONS (3)
  - Headache [Unknown]
  - Inflammation [Unknown]
  - Rash [Unknown]
